FAERS Safety Report 26163059 (Version 1)
Quarter: 2025Q4

REPORT INFORMATION
  Report Type: Report from Study
  Country: CA (occurrence: CA)
  Receive Date: 20251216
  Receipt Date: 20251216
  Transmission Date: 20260117
  Serious: Yes (Other)
  Sender: JOHNSON AND JOHNSON
  Company Number: CA-JNJFOC-20250711434

PATIENT
  Age: 58 Year
  Sex: Male

DRUGS (1)
  1. SIMPONI [Suspect]
     Active Substance: GOLIMUMAB
     Indication: Rheumatoid arthritis
     Route: 058
     Dates: start: 20250509

REACTIONS (6)
  - Fall [Unknown]
  - Face injury [Recovered/Resolved]
  - Shoulder operation [Recovering/Resolving]
  - Limb injury [Recovered/Resolved]
  - Post procedural haemorrhage [Unknown]
  - Balance disorder [Unknown]

NARRATIVE: CASE EVENT DATE: 20250624
